FAERS Safety Report 19725934 (Version 1)
Quarter: 2021Q3

REPORT INFORMATION
  Report Type: Spontaneous
  Country: IE (occurrence: IE)
  Receive Date: 20210819
  Receipt Date: 20210819
  Transmission Date: 20211014
  Serious: Yes (Other)
  Sender: FDA-Public Use
  Company Number: IE-INSUD PHARMA-2108IE00896

PATIENT
  Age: 34 Year
  Sex: Female

DRUGS (5)
  1. CALCIUM GLUCONATE. [Concomitant]
     Active Substance: CALCIUM GLUCONATE
     Route: 042
  2. CALCIUM CARBONATE. [Interacting]
     Active Substance: CALCIUM CARBONATE
     Dosage: INCREASING
     Route: 048
  3. CALCIUM CARBONATE. [Interacting]
     Active Substance: CALCIUM CARBONATE
     Route: 048
  4. OMEPRAZOLE. [Suspect]
     Active Substance: OMEPRAZOLE
     Indication: PRODUCT USED FOR UNKNOWN INDICATION
  5. ERGOCALCIFEROL. [Concomitant]
     Active Substance: ERGOCALCIFEROL
     Route: 048

REACTIONS (6)
  - Paraesthesia oral [Recovering/Resolving]
  - Calcium ionised decreased [Recovering/Resolving]
  - Maternal exposure during pregnancy [Recovering/Resolving]
  - Achlorhydria [Recovering/Resolving]
  - Drug interaction [Recovering/Resolving]
  - Chvostek^s sign [Recovering/Resolving]
